FAERS Safety Report 6121360-X (Version None)
Quarter: 2009Q1

REPORT INFORMATION
  Report Type: 
  Country: None (occurrence: None)
  Receive Date: 20090317
  Receipt Date: 20090306
  Transmission Date: 20090719
  Serious: Yes (Hospitalization, Disabling, Other)
  Sender: FDA-Public Use
  Company Number: ZA-BAXTER-2009BH003748

PATIENT
  Sex: Female

DRUGS (4)
  1. BALANCED SALT [Suspect]
     Indication: DRUG USE FOR UNKNOWN INDICATION
     Route: 065
  2. BALANCED SALT [Suspect]
     Route: 065
  3. PROTON [Concomitant]
     Indication: HYPERTENSION
     Route: 048
  4. BICOLOR [Concomitant]
     Indication: HYPERTENSION
     Route: 048

REACTIONS (1)
  - ENDOPHTHALMITIS [None]
